FAERS Safety Report 5909118-5 (Version None)
Quarter: 2008Q4

REPORT INFORMATION
  Report Type: 
  Country: None (occurrence: None)
  Receive Date: 20081006
  Receipt Date: 20080924
  Transmission Date: 20090506
  Serious: Yes (Hospitalization)
  Sender: FDA-Public Use
  Company Number: NL-ROCHE-588069

PATIENT
  Weight: 79 kg

DRUGS (4)
  1. CAPECITABINE [Suspect]
     Indication: GASTRIC CANCER
     Dosage: THERAPY DELAYED.
     Route: 048
     Dates: start: 20080326
  2. CISPLATIN [Suspect]
     Indication: GASTRIC CANCER
     Dosage: THERAPY DELAYED.
     Route: 042
     Dates: start: 20080326
  3. EPIRUBICIN [Suspect]
     Indication: GASTRIC CANCER
     Dosage: THERAPY DELAYED.
     Route: 042
     Dates: start: 20080326
  4. VITAMIN B-12 [Concomitant]
     Route: 030
     Dates: start: 20080701

REACTIONS (1)
  - INTESTINAL FISTULA INFECTION [None]
